FAERS Safety Report 12709429 (Version 1)
Quarter: 2016Q3

REPORT INFORMATION
  Report Type: Spontaneous
  Country: US (occurrence: None)
  Receive Date: 20160901
  Receipt Date: 20160901
  Transmission Date: 20161109
  Serious: Yes (Hospitalization)
  Sender: FDA-Public Use
  Company Number: None

PATIENT
  Age: 84 Year
  Sex: Male
  Weight: 90 kg

DRUGS (1)
  1. RIVAROXABAN [Suspect]
     Active Substance: RIVAROXABAN
     Indication: ATRIAL FIBRILLATION
     Route: 048
     Dates: start: 20160517, end: 20160603

REACTIONS (7)
  - Asthenia [None]
  - Gastrointestinal angiectasia [None]
  - Gastric polyps [None]
  - Gastrointestinal haemorrhage [None]
  - Abdominal pain [None]
  - Diarrhoea [None]
  - Gastritis [None]

NARRATIVE: CASE EVENT DATE: 20160603
